FAERS Safety Report 9878205 (Version 1)
Quarter: 2014Q1

REPORT INFORMATION
  Report Type: Report from Study
  Country: CA (occurrence: CA)
  Receive Date: 20140206
  Receipt Date: 20140206
  Transmission Date: 20141002
  Serious: Yes (Other)
  Sender: FDA-Public Use
  Company Number: CA-JNJFOC-20140119661

PATIENT
  Age: 47 Year
  Sex: Male
  Weight: 129.7 kg

DRUGS (5)
  1. REMICADE [Suspect]
     Indication: CROHN^S DISEASE
     Route: 042
     Dates: start: 20140115
  2. PENTASA [Concomitant]
     Route: 065
  3. CIPROFLOXACIN [Concomitant]
     Route: 065
  4. AZATHIOPRIN [Concomitant]
     Route: 065
  5. RABEPRAZOLE [Concomitant]
     Route: 065

REACTIONS (4)
  - Fistula [Not Recovered/Not Resolved]
  - Musculoskeletal discomfort [Unknown]
  - Chills [Unknown]
  - Paraesthesia [Unknown]
